FAERS Safety Report 10374494 (Version 2)
Quarter: 2015Q1

REPORT INFORMATION
  Report Type: Spontaneous
  Country: GB (occurrence: GB)
  Receive Date: 20140811
  Receipt Date: 20150121
  Transmission Date: 20150720
  Serious: Yes (Hospitalization)
  Sender: FDA-Public Use
  Company Number: GB-BRISTOL-MYERS SQUIBB COMPANY-21265657

PATIENT
  Age: 46 Year
  Sex: Female

DRUGS (2)
  1. SEROQUEL [Suspect]
     Active Substance: QUETIAPINE FUMARATE
     Indication: PRODUCT USED FOR UNKNOWN INDICATION
     Dosage: 150 MG, UNK
     Route: 065
  2. ABILIFY [Suspect]
     Active Substance: ARIPIPRAZOLE
     Indication: SCHIZOPHRENIA
     Dosage: 1 DF, QD
     Route: 048
     Dates: start: 20140626, end: 20140716

REACTIONS (5)
  - Neck pain [Unknown]
  - Musculoskeletal stiffness [Unknown]
  - Haemorrhage [Unknown]
  - Meningitis [Unknown]
  - Migraine [Unknown]

NARRATIVE: CASE EVENT DATE: 201407
